FAERS Safety Report 10877161 (Version 5)
Quarter: 2021Q3

REPORT INFORMATION
  Report Type: Report from Study
  Country: GB (occurrence: GB)
  Receive Date: 20150302
  Receipt Date: 20210701
  Transmission Date: 20211014
  Serious: Yes (Death)
  Sender: FDA-Public Use
  Company Number: GB-ROCHE-1544284

PATIENT
  Age: 57 Year
  Sex: Male

DRUGS (50)
  1. GLICLAZIDE [Concomitant]
     Active Substance: GLICLAZIDE
     Indication: BLOOD GLUCOSE INCREASED
     Dates: start: 20150212, end: 20150327
  2. ONDANSETRON [Concomitant]
     Active Substance: ONDANSETRON
     Indication: NAUSEA
     Dates: start: 20150310, end: 20150324
  3. LAXIDO [Concomitant]
     Active Substance: POLYETHYLENE GLYCOL 3350\POTASSIUM CHLORIDE\SODIUM BICARBONATE\SODIUM CHLORIDE
     Indication: CONSTIPATION
     Dates: start: 20150115, end: 20150309
  4. FENTANYL. [Concomitant]
     Active Substance: FENTANYL
     Indication: SEDATION
     Dates: start: 20150328, end: 20150329
  5. CYCLIZINE [Concomitant]
     Active Substance: CYCLIZINE
     Indication: NAUSEA
     Dates: start: 20150211, end: 20150303
  6. SANDO K [Concomitant]
     Indication: BLOOD POTASSIUM DECREASED
     Dates: start: 20150211, end: 20150219
  7. DAUNORUBICIN [Concomitant]
     Active Substance: DAUNORUBICIN
     Dates: start: 20150303, end: 20150322
  8. GLUCOSE [Concomitant]
     Active Substance: DEXTROSE
     Dates: start: 20150303, end: 20150324
  9. TEICOPLANIN [Concomitant]
     Active Substance: TEICOPLANIN
     Indication: SEPSIS
     Dates: start: 20150328, end: 20150330
  10. CYCLOPHOSPHAMIDE. [Suspect]
     Active Substance: CYCLOPHOSPHAMIDE
     Indication: NON-HODGKIN^S LYMPHOMA UNSPECIFIED HISTOLOGY INDOLENT
     Dosage: LAST DOSE (1500MG) TAKEN PRIOR TO ONSET OF EVENT ON 05/SEP/2013
     Route: 042
     Dates: start: 20130501
  11. DEXAMETHASONE. [Concomitant]
     Active Substance: DEXAMETHASONE
     Dates: start: 20150324, end: 20150326
  12. COTRIMAXAZOLE [Concomitant]
     Active Substance: SULFAMETHOXAZOLE\TRIMETHOPRIM
     Indication: INFECTION
     Dates: start: 20150212, end: 20150329
  13. ACICLOVIR [Concomitant]
     Active Substance: ACYCLOVIR
     Indication: FUNGAL INFECTION
     Dates: start: 20150228, end: 20150328
  14. METHOTREXATE. [Concomitant]
     Active Substance: METHOTREXATE
     Dates: start: 20150319, end: 20150319
  15. HYDROCORTISONE. [Concomitant]
     Active Substance: HYDROCORTISONE
     Indication: SEPSIS
     Dates: start: 20150321, end: 20150327
  16. CEFUROXIME. [Concomitant]
     Active Substance: CEFUROXIME
     Indication: SEPSIS
     Dates: start: 20150328, end: 20150328
  17. SUXAMETHONIUM [Concomitant]
     Active Substance: SUCCINYLCHOLINE
     Indication: NEUROMUSCULAR BLOCKADE
     Dates: start: 20150328, end: 20150328
  18. SENNA [Concomitant]
     Active Substance: SENNA LEAF\SENNOSIDES\SENNOSIDES A AND B
     Indication: CONSTIPATION
     Dates: start: 20150319, end: 20150320
  19. VASOPRESSIN. [Concomitant]
     Active Substance: VASOPRESSIN
     Indication: CARDIAC FAILURE
     Dates: start: 20150329, end: 20150329
  20. MIDAZOLAM. [Concomitant]
     Active Substance: MIDAZOLAM
     Indication: SEDATION
     Dates: start: 20150329, end: 20150330
  21. OBINUTUZUMAB. [Suspect]
     Active Substance: OBINUTUZUMAB
     Indication: NON-HODGKIN^S LYMPHOMA UNSPECIFIED HISTOLOGY INDOLENT
     Dosage: LAST DOSE (1000ML AT 4MG/ML CONCENTRATION) TAKEN ON 28/JAN/2015
     Route: 042
     Dates: start: 20130501
  22. ALLOPURINOL. [Concomitant]
     Active Substance: ALLOPURINOL
     Indication: PROPHYLAXIS
     Dates: start: 20150323, end: 20150325
  23. MEROPENEM. [Concomitant]
     Active Substance: MEROPENEM
     Indication: SEPSIS
     Dates: start: 20150328, end: 20150330
  24. DOXORUBICIN [Suspect]
     Active Substance: DOXORUBICIN
     Indication: NON-HODGKIN^S LYMPHOMA UNSPECIFIED HISTOLOGY INDOLENT
     Dosage: LAST DOSE (100MG) TAKEN PRIOR TO ONSET OF EVENT ON 05/SEP/2013
     Route: 042
     Dates: start: 20130501
  25. PREDNISOLONE. [Suspect]
     Active Substance: PREDNISOLONE
     Indication: NON-HODGKIN^S LYMPHOMA UNSPECIFIED HISTOLOGY INDOLENT
     Dosage: LAST DOSE OF PREDNISOLONE (100 MG) PRIOR TO SAE: 09 /SEP/2013 ?SUBSEQUENT DOSES OF PREDNISOLONE WERE
     Route: 048
     Dates: start: 20130501
  26. OMEPRAZOLE. [Concomitant]
     Active Substance: OMEPRAZOLE
     Indication: DYSPEPSIA
     Dates: start: 20140708, end: 201407
  27. OMEPRAZOLE. [Concomitant]
     Active Substance: OMEPRAZOLE
     Indication: REGURGITATION
     Dates: start: 20150329, end: 20150329
  28. DEXAMETHASONE. [Concomitant]
     Active Substance: DEXAMETHASONE
     Indication: PROPHYLAXIS
     Dates: start: 20150124, end: 20150303
  29. ONDANSETRON [Concomitant]
     Active Substance: ONDANSETRON
     Dates: start: 20150327, end: 20150327
  30. PEG/L?ASPARAGINASE [Concomitant]
     Active Substance: PEGASPARGASE
     Dates: start: 20150320, end: 20150320
  31. DEXAMETHASONE. [Concomitant]
     Active Substance: DEXAMETHASONE
     Dates: start: 20150212, end: 20150305
  32. PIRITON [Concomitant]
     Active Substance: CHLORPHENIRAMINE MALEATE
     Dates: start: 20150227, end: 20150227
  33. ACTRAPID [Concomitant]
     Active Substance: INSULIN HUMAN
     Indication: BLOOD GLUCOSE INCREASED
     Dates: start: 20150308, end: 20150329
  34. PROPOFOL. [Concomitant]
     Active Substance: PROPOFOL
     Indication: ANAESTHESIA
     Dates: start: 20150328, end: 20150329
  35. PROPOFOL. [Concomitant]
     Active Substance: PROPOFOL
     Indication: SEDATION
  36. ADRENALINE [Concomitant]
     Active Substance: EPINEPHRINE
     Indication: CARDIAC FAILURE
     Dates: start: 20150328, end: 20150329
  37. VINCRISTINE [Suspect]
     Active Substance: VINCRISTINE
     Indication: NON-HODGKIN^S LYMPHOMA UNSPECIFIED HISTOLOGY INDOLENT
     Dosage: LAST DOSE (2MG) TAKEN PRIOR TO ONSET OF EVENT ON 05/SEP/2013
     Route: 040
     Dates: start: 20130501
  38. OMEPRAZOLE. [Concomitant]
     Active Substance: OMEPRAZOLE
     Indication: GASTRITIS EROSIVE
     Dates: start: 20150211, end: 20150326
  39. DEXAMETHASONE. [Concomitant]
     Active Substance: DEXAMETHASONE
     Indication: SEPSIS
     Dates: start: 20150306, end: 20150313
  40. AMBISONE [Concomitant]
     Active Substance: AMPHOTERICIN B
     Indication: BLOOD CREATININE INCREASED
     Dates: start: 20150203, end: 20150330
  41. CYCLIZINE [Concomitant]
     Active Substance: CYCLIZINE
     Dates: start: 20150327, end: 20150327
  42. AMILORIDE [Concomitant]
     Active Substance: AMILORIDE
     Indication: HYPOKALAEMIA
     Dates: start: 20150212, end: 20150219
  43. METRONIDAZOLE. [Concomitant]
     Active Substance: METRONIDAZOLE
     Indication: SEPSIS
     Dates: start: 20150328, end: 20150329
  44. NORADRENALINE [Concomitant]
     Active Substance: NOREPINEPHRINE
     Indication: HYPOTENSION
     Dates: start: 20150328, end: 20150329
  45. VINCRISTINE [Suspect]
     Active Substance: VINCRISTINE
     Route: 040
     Dates: start: 20150303, end: 20150322
  46. PARACETAMOL [Concomitant]
     Active Substance: ACETAMINOPHEN
     Indication: INFECTION
     Dates: start: 20130501
  47. PARACETAMOL [Concomitant]
     Active Substance: ACETAMINOPHEN
     Indication: HEADACHE
     Dates: start: 20150201
  48. CHLORPHENAMINE [Concomitant]
     Active Substance: CHLORPHENIRAMINE MALEATE
     Indication: HYPERSENSITIVITY
     Dates: start: 20130501
  49. CIPROFLOXACIN. [Concomitant]
     Active Substance: CIPROFLOXACIN
     Indication: PROPHYLAXIS
     Dates: start: 20150228, end: 20150330
  50. HYDROCORTISONE. [Concomitant]
     Active Substance: HYDROCORTISONE
     Dates: start: 20150328, end: 20150330

REACTIONS (1)
  - Acute lymphocytic leukaemia [Fatal]

NARRATIVE: CASE EVENT DATE: 20150220
